FAERS Safety Report 15281561 (Version 1)
Quarter: 2018Q3

REPORT INFORMATION
  Report Type: Spontaneous
  Country: US (occurrence: US)
  Receive Date: 20180731
  Receipt Date: 20180731
  Transmission Date: 20181010
  Serious: Yes (Hospitalization)
  Sender: FDA-Public Use
  Company Number: None

PATIENT
  Age: 51 Year
  Sex: Female
  Weight: 97 kg

DRUGS (3)
  1. PHENTERMINE. [Suspect]
     Active Substance: PHENTERMINE
     Indication: WEIGHT CONTROL
     Route: 048
  2. PHENTERMINE. [Suspect]
     Active Substance: PHENTERMINE
     Indication: OBESITY
     Route: 048
  3. TOPIRAMATE. [Concomitant]
     Active Substance: TOPIRAMATE

REACTIONS (3)
  - Chest pain [None]
  - Ventricular tachycardia [None]
  - Acute coronary syndrome [None]

NARRATIVE: CASE EVENT DATE: 20180730
